FAERS Safety Report 6211705-4 (Version None)
Quarter: 2009Q2

REPORT INFORMATION
  Report Type: 
  Country: None (occurrence: None)
  Receive Date: 20090602
  Receipt Date: 20090526
  Transmission Date: 20091009
  Serious: Yes (Disabling)
  Sender: FDA-Public Use
  Company Number: B0576735A

PATIENT
  Sex: Female

DRUGS (3)
  1. AUGMENTIN '125' [Suspect]
     Indication: PNEUMONIA
     Dosage: 2G PER DAY
     Route: 048
     Dates: start: 20090430, end: 20090506
  2. NUROFEN [Concomitant]
     Dosage: 2TAB PER DAY
     Route: 048
  3. HALIXOL [Concomitant]
     Indication: PNEUMONIA
     Route: 048

REACTIONS (3)
  - ANAL FISSURE [None]
  - PAINFUL DEFAECATION [None]
  - VULVOVAGINAL BURNING SENSATION [None]
